FAERS Safety Report 16964871 (Version 1)
Quarter: 2019Q4

REPORT INFORMATION
  Report Type: Report from Study
  Country: None (occurrence: IT)
  Receive Date: 20191028
  Receipt Date: 20191028
  Transmission Date: 20200122
  Serious: Yes (Other)
  Sender: FDA-Public Use
  Company Number: IT-TEVA-2019-IT-1129009

PATIENT
  Age: 55 Year
  Sex: Female

DRUGS (3)
  1. DEXAMETHASONE. [Concomitant]
     Active Substance: DEXAMETHASONE
     Indication: SERPIGINOUS CHOROIDITIS
     Dosage: ONE INJECTION
     Route: 050
  2. PREDNISONE. [Suspect]
     Active Substance: PREDNISONE
     Indication: SERPIGINOUS CHOROIDITIS
     Dosage: 7 MILLIGRAM DAILY;
     Route: 065
  3. METHOTREXATE. [Suspect]
     Active Substance: METHOTREXATE
     Indication: SERPIGINOUS CHOROIDITIS
     Route: 065

REACTIONS (2)
  - Hypertension [Unknown]
  - Cardiovascular disorder [Unknown]
